FAERS Safety Report 10261663 (Version 6)
Quarter: 2014Q4

REPORT INFORMATION
  Report Type: Report from Study
  Country: JP (occurrence: JP)
  Receive Date: 20140626
  Receipt Date: 20141122
  Transmission Date: 20150528
  Serious: Yes (Death, Hospitalization)
  Sender: FDA-Public Use
  Company Number: JP-B.I. PHARMACEUTICALS,INC./RIDGEFIELD-2014-BI-24960NB

PATIENT
  Age: 62 Year
  Sex: Male
  Weight: 58 kg

DRUGS (13)
  1. MUCOSTA [Concomitant]
     Active Substance: REBAMIPIDE
     Indication: DECREASED APPETITE
     Dosage: 200 MG
     Route: 048
     Dates: end: 20140529
  2. DECADRON [Concomitant]
     Active Substance: DEXAMETHASONE
     Indication: PRODUCT USED FOR UNKNOWN INDICATION
     Route: 065
     Dates: end: 20140703
  3. PANVITAN [Concomitant]
     Indication: PRODUCT USED FOR UNKNOWN INDICATION
     Dosage: 1 G
     Route: 048
     Dates: end: 20140527
  4. PRIMPERAN [Concomitant]
     Active Substance: METOCLOPRAMIDE HYDROCHLORIDE
     Indication: DECREASED APPETITE
     Dosage: 30 MG
     Route: 048
     Dates: end: 20140529
  5. LOPEMIN [Concomitant]
     Active Substance: LOPERAMIDE HYDROCHLORIDE
     Indication: PROPHYLAXIS
     Dosage: 2 MG
     Route: 048
     Dates: start: 20140523, end: 20140617
  6. LAC-B [Concomitant]
     Active Substance: BIFIDOBACTERIUM SPP.
     Indication: PROPHYLAXIS
     Dosage: 3 G
     Route: 048
     Dates: start: 20140523, end: 20140617
  7. GILOTRIF [Suspect]
     Active Substance: AFATINIB
     Indication: LUNG ADENOCARCINOMA
     Dosage: 40 MG
     Route: 048
     Dates: start: 20140523, end: 20140618
  8. HACHIAZULE [Concomitant]
     Indication: PROPHYLAXIS
  9. FLIVAS [Concomitant]
     Active Substance: NAFTOPIDIL
     Indication: BENIGN PROSTATIC HYPERPLASIA
     Dosage: 50 MG
     Route: 048
     Dates: start: 20140523, end: 20140628
  10. KLARICID [Concomitant]
     Active Substance: CLARITHROMYCIN
     Indication: PROPHYLAXIS
     Dosage: 1200 MG
     Route: 048
     Dates: end: 20140617
  11. FAMOTIDINE. [Concomitant]
     Active Substance: FAMOTIDINE
     Indication: DECREASED APPETITE
     Dosage: 40 MG
     Route: 048
     Dates: end: 20140617
  12. GLYCYRON [Concomitant]
     Active Substance: AMMONIUM GLYCYRRHIZATE\GLYCINE\METHIONINE
     Indication: PRODUCT USED FOR UNKNOWN INDICATION
     Route: 048
     Dates: end: 20140703
  13. HACHIAZULE [Concomitant]
     Indication: STOMATITIS
     Route: 065
     Dates: start: 20140523, end: 20140628

REACTIONS (5)
  - Melaena [Recovered/Resolved]
  - Hepatic failure [Fatal]
  - Anaemia [Not Recovered/Not Resolved]
  - Stomatitis [Recovered/Resolved]
  - Diarrhoea [Recovered/Resolved]

NARRATIVE: CASE EVENT DATE: 2014
